FAERS Safety Report 8582985-5 (Version None)
Quarter: 2012Q3

REPORT INFORMATION
  Report Type: 
  Country: None (occurrence: None)
  Receive Date: 20120809
  Receipt Date: 20120806
  Transmission Date: 20120928
  Serious: Yes (Other)
  Sender: FDA-Public Use
  Company Number: US-PFIZER INC-2012191605

PATIENT
  Age: 61 Year
  Sex: Female
  Weight: 74.376 kg

DRUGS (2)
  1. PRISTIQ [Suspect]
     Indication: DEPRESSION
     Dosage: 50 MG, 1X/DAY
     Route: 048
  2. CLONAZEPAM [Suspect]
     Indication: ANXIETY
     Dosage: UNK

REACTIONS (8)
  - PARAESTHESIA [None]
  - SENSORY DISTURBANCE [None]
  - POOR QUALITY SLEEP [None]
  - TREMOR [None]
  - NEUROPATHY PERIPHERAL [None]
  - DISCOMFORT [None]
  - DRUG DEPENDENCE [None]
  - BURNING SENSATION [None]
